FAERS Safety Report 6080606-7 (Version None)
Quarter: 2009Q1

REPORT INFORMATION
  Report Type: 
  Country: None (occurrence: None)
  Receive Date: 20090217
  Receipt Date: 20090213
  Transmission Date: 20090719
  Serious: Yes (Death)
  Sender: FDA-Public Use
  Company Number: ES-WYE-G03122809

PATIENT
  Age: 56 Year
  Sex: Male

DRUGS (9)
  1. TAZOCEL [Suspect]
     Indication: NOSOCOMIAL INFECTION
     Route: 042
     Dates: start: 20081205, end: 20081210
  2. ALMAX [Concomitant]
     Dosage: UNKNOWN
     Route: 048
     Dates: start: 20081205
  3. BUSCAPINA [Concomitant]
     Dosage: UNKNOWN
     Dates: start: 20081205
  4. URBASON [Concomitant]
     Dates: start: 20081205
  5. ORFIDAL [Concomitant]
     Route: 048
     Dates: start: 20081205
  6. PRIMPERAN TAB [Concomitant]
     Dosage: UNKNOWN
     Route: 048
     Dates: start: 20081205
  7. URBAL [Concomitant]
     Dosage: UNKNOWN
     Route: 048
     Dates: start: 20081205
  8. PANTOPRAZOLE [Concomitant]
     Dates: start: 20081205
  9. NULYTELY [Concomitant]
     Route: 048
     Dates: start: 20081205

REACTIONS (2)
  - HEPATITIS CHOLESTATIC [None]
  - RESPIRATORY DISORDER [None]
